FAERS Safety Report 7832166-5 (Version None)
Quarter: 2011Q4

REPORT INFORMATION
  Report Type: 
  Country: None (occurrence: None)
  Receive Date: 20111022
  Receipt Date: 20111007
  Transmission Date: 20120403
  Serious: Yes (Hospitalization)
  Sender: FDA-Public Use
  Company Number: US-BAYER-2011-017080

PATIENT
  Age: 42 Year
  Sex: Female
  Weight: 89.796 kg

DRUGS (6)
  1. XENICAL [Concomitant]
  2. GUIATUSS A.C. [GUAIFENESIN] [Concomitant]
  3. PRINIVIL [Concomitant]
  4. LISINOPRIL [Concomitant]
     Indication: BLOOD PRESSURE MANAGEMENT
     Dosage: UNK
     Dates: start: 20020601, end: 20050701
  5. YASMIN [Suspect]
     Indication: MENOPAUSAL SYMPTOMS
     Dosage: UNK
     Dates: start: 20010801, end: 20020801
  6. AMOXICILLIN [Concomitant]

REACTIONS (5)
  - OEDEMA PERIPHERAL [None]
  - DEEP VEIN THROMBOSIS [None]
  - INJURY [None]
  - PULMONARY EMBOLISM [None]
  - PAIN [None]
